FAERS Safety Report 14539968 (Version 1)
Quarter: 2018Q1

REPORT INFORMATION
  Report Type: Spontaneous
  Country: NL (occurrence: NL)
  Receive Date: 20180216
  Receipt Date: 20180216
  Transmission Date: 20180509
  Serious: Yes (Life-Threatening)
  Sender: FDA-Public Use
  Company Number: NL-TEVA-2018-NL-857598

PATIENT
  Age: 74 Year
  Sex: Male
  Weight: 65 kg

DRUGS (9)
  1. OXALIPLATINE INFUUS, 5 MG/ML (MILLIGRAM PER MILLILITER [Suspect]
     Active Substance: OXALIPLATIN
     Indication: COLON CANCER
     Dosage: 235MG
     Dates: start: 20171123
  2. LEVOCETIRIZINE 5MG TABLET [Concomitant]
     Active Substance: LEVOCETIRIZINE
  3. XELODA [Concomitant]
     Active Substance: CAPECITABINE
  4. NIFEDIPINE (ADALAT OROS) 30MG TABLET MGA [Concomitant]
  5. FLUTICASON (FLIXONASE) 50UG/DO NEUSSPRAY [Concomitant]
     Active Substance: FLUTICASONE PROPIONATE
  6. CAPECITABINE (XELODA) 150MG TABLET FO [Concomitant]
  7. BEVACIZUMAB. [Concomitant]
     Active Substance: BEVACIZUMAB
     Dosage: 7,5 MG/M2
  8. SILDENAFIL 25MG TABLET [Concomitant]
  9. CROMOGLICINEZUUR 20MG/ML NEUSSPRAY [Concomitant]
     Active Substance: CROMOLYN SODIUM

REACTIONS (4)
  - Hypotension [Recovered/Resolved]
  - Defaecation urgency [Recovered/Resolved]
  - Bradycardia [Recovered/Resolved]
  - Anaphylactic reaction [Recovered/Resolved]

NARRATIVE: CASE EVENT DATE: 20171123
